FAERS Safety Report 12893116 (Version 24)
Quarter: 2022Q3

REPORT INFORMATION
  Report Type: Report from Study
  Country: GB (occurrence: GB)
  Receive Date: 20161028
  Receipt Date: 20220926
  Transmission Date: 20221026
  Serious: Yes (Life-Threatening, Hospitalization, Disabling, Other)
  Sender: FDA-Public Use
  Company Number: None

PATIENT
  Age: 42 Year
  Sex: Female
  Weight: 98 kg

DRUGS (79)
  1. DOCETAXEL [Suspect]
     Active Substance: DOCETAXEL
     Indication: Breast cancer metastatic
     Dosage: 160 MG (LOADING DOSE)
     Route: 042
     Dates: start: 20160718, end: 20160830
  2. DOCETAXEL [Suspect]
     Active Substance: DOCETAXEL
     Dosage: 160 MG, MONTHLY (MAINTENANCE DOSE)
     Route: 042
     Dates: start: 20160808, end: 20160808
  3. DOCETAXEL [Suspect]
     Active Substance: DOCETAXEL
     Dosage: 164 MG, MONTHLY (MAINTENANCE DOSE)
     Route: 042
     Dates: start: 20160830, end: 20160830
  4. TRASTUZUMAB [Suspect]
     Active Substance: TRASTUZUMAB
     Indication: Breast cancer metastatic
     Dosage: (08/08/16 TO 30/08/16 420 MG)
     Route: 042
     Dates: start: 20160808, end: 20160830
  5. TRASTUZUMAB [Suspect]
     Active Substance: TRASTUZUMAB
     Dosage: 798MG (DOSE LOADING)
     Route: 042
     Dates: start: 20160718
  6. TRASTUZUMAB [Suspect]
     Active Substance: TRASTUZUMAB
     Dosage: 609 MG, MONTHLY
     Route: 042
  7. TRASTUZUMAB [Suspect]
     Active Substance: TRASTUZUMAB
     Dosage: 588 MG, MONTHLY
     Route: 042
     Dates: start: 20160808, end: 20160808
  8. PERTUZUMAB [Suspect]
     Active Substance: PERTUZUMAB
     Indication: Breast cancer metastatic
     Dosage: 840 MG (LOADING DOSE)
     Route: 042
     Dates: start: 20160718, end: 20160718
  9. PERTUZUMAB [Suspect]
     Active Substance: PERTUZUMAB
     Dosage: 420 MG, MONTHLY (MAINTENANCE DOSE)
     Route: 042
     Dates: start: 20160808, end: 20160808
  10. PERTUZUMAB [Suspect]
     Active Substance: PERTUZUMAB
     Dosage: 420 MG, MONTHLY (MAINTENANCE DOSE)
     Route: 042
     Dates: start: 20160830, end: 20160830
  11. HERCEPTIN [Suspect]
     Active Substance: TRASTUZUMAB
     Indication: Breast cancer metastatic
     Dosage: 798 MG (SINGLE LOADING DOSE)
     Route: 042
     Dates: start: 20160718, end: 20160718
  12. HERCEPTIN [Suspect]
     Active Substance: TRASTUZUMAB
     Dosage: 588 MG, MONTHLY (MAINTENANCE DOSE)
     Route: 042
     Dates: start: 20160808, end: 20160808
  13. HERCEPTIN [Suspect]
     Active Substance: TRASTUZUMAB
     Dosage: 609 MG, MONTHLY (MAINTENANCE DOSE)
     Dates: start: 20160830, end: 20160830
  14. DOXYCYCLINE [Suspect]
     Active Substance: DOXYCYCLINE
     Indication: Rash
     Dosage: 160 MG
     Route: 042
     Dates: start: 20160708
  15. DOXYCYCLINE [Suspect]
     Active Substance: DOXYCYCLINE
     Indication: Breast cancer metastatic
     Dosage: 160 UNK
     Route: 042
     Dates: start: 20160718
  16. DOXYCYCLINE [Suspect]
     Active Substance: DOXYCYCLINE
     Dosage: 164 UNK
     Route: 042
     Dates: start: 20160830
  17. TINZAPARIN [Concomitant]
     Active Substance: TINZAPARIN
     Dosage: UNK
  18. FLUCLOXACILLIN [Concomitant]
     Active Substance: FLUCLOXACILLIN
     Dosage: UNK
  19. MAGNASPARTATE [Concomitant]
     Indication: Blood magnesium decreased
     Dosage: 10 MMOL
     Dates: start: 20160908
  20. MAGNASPARTATE [Concomitant]
     Indication: Blood magnesium decreased
  21. ONDANSETRON [Concomitant]
     Active Substance: ONDANSETRON
     Indication: Nausea
     Dosage: 4 MG, UNK (TABLET)
     Route: 048
     Dates: start: 20160908
  22. ACETAMINOPHEN [Concomitant]
     Active Substance: ACETAMINOPHEN
     Indication: Pain
     Dosage: 1 G (TABLET)
     Route: 048
     Dates: start: 20160908
  23. CYCLIZINE [Concomitant]
     Active Substance: CYCLIZINE
     Indication: Nausea
     Dosage: 50 MG, AS NEEDED (TABLET)
     Route: 048
     Dates: start: 20160908
  24. DIHYDROCODEINE [Concomitant]
     Active Substance: DIHYDROCODEINE
     Indication: Pain
     Dosage: 30 MG (TABLET)
     Route: 048
     Dates: start: 20160908
  25. CITALOPRAM [Concomitant]
     Active Substance: CITALOPRAM HYDROBROMIDE
     Indication: Depression
     Dosage: 20 MG, DAILY (TABLET)
     Route: 048
     Dates: start: 20160921
  26. MAGNESIUM ASPARTATE [Concomitant]
     Active Substance: MAGNESIUM ASPARTATE
     Indication: Blood magnesium decreased
     Dosage: 10 MMOL
     Dates: start: 20160908
  27. FONDAPARINUX [Concomitant]
     Active Substance: FONDAPARINUX
     Indication: Colitis ischaemic
  28. METARAMINOL [Concomitant]
     Active Substance: METARAMINOL
     Indication: Colitis ischaemic
  29. OMEPRAZOLE [Concomitant]
     Active Substance: OMEPRAZOLE
     Indication: Colitis ischaemic
  30. CALCIUM GLUCONATE [Concomitant]
     Active Substance: CALCIUM GLUCONATE
     Indication: Colitis ischaemic
  31. ZOPICLONE [Concomitant]
     Active Substance: ZOPICLONE
  32. SODIUM CITRATE [Concomitant]
     Active Substance: SODIUM CITRATE
  33. POTASSIUM BICARBONATE [Concomitant]
     Active Substance: POTASSIUM BICARBONATE
  34. MAGNESIUM SULFATE [Concomitant]
     Active Substance: MAGNESIUM SULFATE
  35. SANDOCAL 1000 [Concomitant]
     Indication: Acute kidney injury
  36. MORPHINE SULFATE [Concomitant]
     Active Substance: MORPHINE SULFATE
  37. LEVOMEPROMAZINE [Concomitant]
     Active Substance: LEVOMEPROMAZINE
  38. HYDROCORTISONE [Concomitant]
     Active Substance: HYDROCORTISONE
     Indication: Neutropenic sepsis
  39. ORAMORPH SR SUSTAINED RELEASE [Concomitant]
     Active Substance: MORPHINE SULFATE
  40. CALCIUM CHLORIDE [Concomitant]
     Active Substance: CALCIUM CHLORIDE
  41. HARTMANS [Concomitant]
     Indication: Neutropenic sepsis
  42. MIDAZOLAM HYDROCHLORIDE [Concomitant]
     Active Substance: MIDAZOLAM HYDROCHLORIDE
     Indication: Colitis ischaemic
  43. VASOPRESSIN [Concomitant]
     Active Substance: VASOPRESSIN
     Indication: Neutropenic sepsis
  44. METOCLOPRAMIDE [Concomitant]
     Active Substance: METOCLOPRAMIDE
     Indication: Colitis ischaemic
  45. TRANEXAMIC ACID [Concomitant]
     Active Substance: TRANEXAMIC ACID
  46. LOPERAMIDE [Concomitant]
     Active Substance: LOPERAMIDE
     Indication: Diarrhoea
     Dosage: 2 MG, AS NEEDED UP TO 4 TIMES A DAY
     Route: 048
     Dates: start: 20161230
  47. METRONIDAZOLE [Concomitant]
     Active Substance: METRONIDAZOLE
     Indication: Colitis ischaemic
  48. OXYCODONE HYDROCHLORIDE [Concomitant]
     Active Substance: OXYCODONE HYDROCHLORIDE
     Indication: Pain
  49. DEXTROSE [Concomitant]
     Active Substance: DEXTROSE
  50. TAUROLIDINE [Concomitant]
     Active Substance: TAUROLIDINE
  51. BUTYLSCOPOLAMINE BROMIDE [Concomitant]
     Active Substance: BUTYLSCOPOLAMINE BROMIDE
     Indication: Colitis ischaemic
  52. DEXTROSE [Concomitant]
     Active Substance: DEXTROSE
     Indication: Neutropenic sepsis
  53. TEICOPLANIN [Concomitant]
     Active Substance: TEICOPLANIN
     Indication: Colitis ischaemic
  54. EPOPROSTENOL [Concomitant]
     Active Substance: EPOPROSTENOL
     Indication: Acute kidney injury
  55. POTASSIUM CHLORIDE [Concomitant]
     Active Substance: POTASSIUM CHLORIDE
  56. DIAZEPAM [Concomitant]
     Active Substance: DIAZEPAM
     Indication: Colitis ischaemic
  57. CIPROFLOXACIN [Concomitant]
     Active Substance: CIPROFLOXACIN
     Indication: Neutropenic sepsis
  58. NITROGLYCERIN [Concomitant]
     Active Substance: NITROGLYCERIN
  59. BISOPROLOL [Concomitant]
     Active Substance: BISOPROLOL
     Indication: Acute kidney injury
  60. MORPHINE [Concomitant]
     Active Substance: MORPHINE
  61. NOREPINEPHRINE [Concomitant]
     Active Substance: NOREPINEPHRINE
  62. RAMIPRIL [Concomitant]
     Active Substance: RAMIPRIL
     Indication: Acute kidney injury
  63. POTASSIUM BICARBONATE\POTASSIUM CHLORIDE [Concomitant]
     Active Substance: POTASSIUM BICARBONATE\POTASSIUM CHLORIDE
     Indication: Acute kidney injury
  64. PIPERACILLIN SODIUM\TAZOBACTAM SODIUM [Concomitant]
     Active Substance: PIPERACILLIN SODIUM\TAZOBACTAM SODIUM
     Indication: Neutropenic sepsis
  65. TOLTERODINE [Concomitant]
     Active Substance: TOLTERODINE
     Indication: Acute kidney injury
  66. ALFENTANIL [Concomitant]
     Active Substance: ALFENTANIL
     Indication: Product used for unknown indication
  67. DOXYCYCLINE [Concomitant]
     Active Substance: DOXYCYCLINE
     Indication: Rash
     Dosage: 100 MG
     Route: 048
     Dates: start: 20160803, end: 20160821
  68. FLUCONAZOLE [Concomitant]
     Active Substance: FLUCONAZOLE
     Indication: Neutropenic sepsis
  69. TAUROLIDINE [Concomitant]
     Active Substance: TAUROLIDINE
  70. CODEINE [Concomitant]
     Active Substance: CODEINE
  71. MEROPENEM [Concomitant]
     Active Substance: MEROPENEM
  72. BONJELA [CETALKONIUM CHLORIDE;CHOLINE SALICYLATE] [Concomitant]
     Indication: Neutropenic sepsis
  73. CHLORHEXIDINE [Concomitant]
     Active Substance: CHLORHEXIDINE
     Indication: Colitis ischaemic
  74. DANAPAROID [Concomitant]
     Active Substance: DANAPAROID
  75. NOREPINEPHRINE [Concomitant]
     Active Substance: NOREPINEPHRINE
  76. DALTEPARIN [Concomitant]
     Active Substance: DALTEPARIN
     Indication: Acute kidney injury
  77. GLUCOGEL [Concomitant]
  78. CHLORHEXIDINE HYDROCHLORIDE\NEOMYCIN SULFATE [Concomitant]
     Active Substance: CHLORHEXIDINE HYDROCHLORIDE\NEOMYCIN SULFATE
  79. SODIUM LACTATE [Concomitant]
     Active Substance: SODIUM LACTATE

REACTIONS (11)
  - Neutropenic sepsis [Recovered/Resolved]
  - Acute kidney injury [Recovered/Resolved]
  - Pneumonia [Recovered/Resolved]
  - Colitis [Recovering/Resolving]
  - Colitis ischaemic [Not Recovered/Not Resolved]
  - Abdominal pain [Recovered/Resolved with Sequelae]
  - Vomiting [Recovered/Resolved with Sequelae]
  - Diarrhoea [Recovered/Resolved]
  - Peritonitis [Recovered/Resolved]
  - Perforation [Recovering/Resolving]
  - Rash [Recovered/Resolved]

NARRATIVE: CASE EVENT DATE: 20160803
